APPROVED DRUG PRODUCT: ANDROID 5
Active Ingredient: METHYLTESTOSTERONE
Strength: 5MG
Dosage Form/Route: TABLET;BUCCAL
Application: A087222 | Product #001
Applicant: VALEANT PHARMACEUTICALS INTERNATIONAL
Approved: Approved Prior to Jan 1, 1982 | RLD: No | RS: No | Type: DISCN